FAERS Safety Report 5395458-8 (Version None)
Quarter: 2007Q3

REPORT INFORMATION
  Report Type: 
  Country: None (occurrence: None)
  Receive Date: 20070724
  Receipt Date: 20070720
  Transmission Date: 20080115
  Serious: Yes (Hospitalization)
  Sender: FDA-Public Use
  Company Number: A0665845A

PATIENT
  Age: 30 Year
  Sex: Female

DRUGS (1)
  1. ABACAVIR [Suspect]
     Indication: HIV INFECTION
     Dosage: 2TAB PER DAY
     Route: 048
     Dates: start: 20070606, end: 20070607

REACTIONS (4)
  - OEDEMA [None]
  - PYREXIA [None]
  - RASH [None]
  - RESPIRATORY DISORDER [None]
